FAERS Safety Report 24191174 (Version 1)
Quarter: 2024Q3

REPORT INFORMATION
  Report Type: Spontaneous
  Country: US (occurrence: None)
  Receive Date: 20240808
  Receipt Date: 20240808
  Transmission Date: 20241017
  Serious: Yes (Other)
  Sender: Public
  Company Number: None

PATIENT
  Age: 67 Year
  Sex: Male
  Weight: 87.75 kg

DRUGS (17)
  1. MOTRIN [Suspect]
     Active Substance: IBUPROFEN
     Indication: Toothache
     Route: 048
     Dates: start: 20240807, end: 20240808
  2. MOTRIN [Suspect]
     Active Substance: IBUPROFEN
     Indication: Pulpitis dental
  3. LISINOPRIL [Concomitant]
     Active Substance: LISINOPRIL
  4. ATORVASTATIN [Concomitant]
     Active Substance: ATORVASTATIN
  5. ASPIRIN [Suspect]
     Active Substance: ASPIRIN
  6. IBUPROFEN [Concomitant]
     Active Substance: IBUPROFEN
  7. VITAMIN D [Concomitant]
     Active Substance: VITAMIN D NOS
  8. VARIOUS PAIN CREAMS [Concomitant]
  9. LIDOCAINE [Concomitant]
     Active Substance: LIDOCAINE
  10. DEVICE [Concomitant]
     Active Substance: DEVICE
  11. RIGHT ANKLE PROSTHETIC [Concomitant]
  12. DIABETIC SHOES [Concomitant]
  13. PSY MEDICATIONS [Concomitant]
  14. MIGRAINE MEDICATION [Concomitant]
  15. COENZYME Q10 [Concomitant]
     Active Substance: DIETARY SUPPLEMENT\UBIDECARENONE
  16. ASPIRIN [Concomitant]
     Active Substance: ASPIRIN
  17. ARGININE [Concomitant]
     Active Substance: ARGININE

REACTIONS (4)
  - Physical product label issue [None]
  - Wrong product administered [None]
  - Abdominal pain upper [None]
  - Abdominal discomfort [None]

NARRATIVE: CASE EVENT DATE: 20240808
